FAERS Safety Report 6325932-9 (Version None)
Quarter: 2009Q3

REPORT INFORMATION
  Report Type: 
  Country: None (occurrence: None)
  Receive Date: 20090824
  Receipt Date: 20090812
  Transmission Date: 20100115
  Serious: Yes (Other)
  Sender: FDA-Public Use
  Company Number: ES-PFIZER INC-2009253168

PATIENT
  Age: 58 Year

DRUGS (2)
  1. DOXORUBICIN HCL [Suspect]
     Indication: BREAST CANCER RECURRENT
     Dosage: 100 MG, EVERY 21 DAYS
     Dates: start: 20010101
  2. CYCLOPHOSPHAMIDE [Suspect]
     Indication: BREAST CANCER RECURRENT
     Dosage: 1000 MG, EVERY 21 DAYS
     Dates: start: 20010101

REACTIONS (1)
  - SYSTEMIC LUPUS ERYTHEMATOSUS [None]
